FAERS Safety Report 8777242 (Version 2)
Quarter: 2012Q4

REPORT INFORMATION
  Report Type: 
  Country: US (occurrence: US)
  Receive Date: 20120911
  Receipt Date: 20121031
  Transmission Date: 20130627
  Serious: Yes (Hospitalization, Other)
  Sender: FDA-Public Use
  Company Number: US-BAYER-2012-093919

PATIENT
  Age: 33 Year
  Sex: Female

DRUGS (19)
  1. YASMIN [Suspect]
     Dosage: UNK
     Dates: start: 200506
  2. YAZ [Suspect]
     Dosage: UNK
     Dates: start: 200506
  3. OCELLA [Suspect]
     Dosage: UNK
     Dates: start: 200506
  4. FLAGYL [Concomitant]
     Dosage: UNK
     Dates: start: 20080417, end: 20080716
  5. FLAGYL [Concomitant]
     Dosage: UNK
     Dates: start: 20080626
  6. FLAGYL [Concomitant]
     Dosage: UNK
     Dates: start: 20080716
  7. ZITHROMAX [Concomitant]
     Dosage: UNK
     Dates: start: 20080417, end: 20080716
  8. ZITHROMAX [Concomitant]
     Dosage: UNK
     Dates: start: 20080626
  9. ZITHROMAX [Concomitant]
     Dosage: UNK
     Dates: start: 20080716
  10. PRENATAL VITAMINS [Concomitant]
     Dosage: UNK
     Dates: start: 20080417, end: 20080716
  11. PRENATAL VITAMINS [Concomitant]
     Dosage: UNK
     Dates: start: 20080626
  12. PRENATAL VITAMINS [Concomitant]
     Dosage: UNK
     Dates: start: 20080716
  13. ULTRAM [Concomitant]
     Dosage: UNK
     Dates: start: 20080626, end: 20080716
  14. ULTRAM [Concomitant]
     Dosage: UNK
     Dates: start: 20080716
  15. BUTALBITAL, ACETAMINOPHEN + CAFFEINE [Concomitant]
  16. SMZ-TMP [Concomitant]
  17. AMOXICILLIN [Concomitant]
  18. CYCLOBENZAPRINE [Concomitant]
  19. TRAMADOL HCL CF [Concomitant]

REACTIONS (7)
  - Pulmonary embolism [None]
  - Pain [None]
  - Injury [None]
  - Deep vein thrombosis [None]
  - Myocardial infarction [None]
  - Cerebrovascular accident [None]
  - Gallbladder disorder [None]
